FAERS Safety Report 14700959 (Version 1)
Quarter: 2018Q1

REPORT INFORMATION
  Report Type: Spontaneous
  Country: GB (occurrence: GB)
  Receive Date: 20180330
  Receipt Date: 20180330
  Transmission Date: 20180509
  Serious: Yes (Hospitalization)
  Sender: FDA-Public Use
  Company Number: GB-CANTON LABORATORIES, LLC-2044819

PATIENT
  Age: 54 Year
  Sex: Male

DRUGS (6)
  1. GABAPENTIN. [Concomitant]
     Active Substance: GABAPENTIN
     Route: 065
  2. RANITIDINE HYDROCHLORIDE. [Concomitant]
     Active Substance: RANITIDINE HYDROCHLORIDE
     Route: 065
  3. LISINOPRIL. [Concomitant]
     Active Substance: LISINOPRIL
     Route: 065
  4. NAPROSYN [Suspect]
     Active Substance: NAPROXEN
     Indication: NECK PAIN
     Route: 048
     Dates: start: 20171219, end: 20180223
  5. SIMVASTATIN. [Concomitant]
     Active Substance: SIMVASTATIN
     Route: 065
  6. ACETYLSALICYLIC ACID (ASPIRIN) [Suspect]
     Active Substance: ASPIRIN
     Route: 048
     Dates: start: 2013, end: 20180223

REACTIONS (6)
  - Abdominal pain upper [Recovering/Resolving]
  - Duodenitis [Recovering/Resolving]
  - Gastric ulcer [Recovering/Resolving]
  - Oesophagitis [Recovering/Resolving]
  - Melaena [Recovering/Resolving]
  - Hiatus hernia [Recovering/Resolving]

NARRATIVE: CASE EVENT DATE: 20180223
